FAERS Safety Report 7480383-9 (Version None)
Quarter: 2011Q2

REPORT INFORMATION
  Report Type: 
  Country: None (occurrence: None)
  Receive Date: 20110504
  Receipt Date: 20110422
  Transmission Date: 20111010
  Serious: Yes (Death, Hospitalization, Disabling, Other)
  Sender: FDA-Public Use
  Company Number: ACO_23602_2011

PATIENT
  Age: 86 Year
  Sex: Male

DRUGS (10)
  1. CARVEDILOL [Concomitant]
  2. ZOLPIDEM [Concomitant]
  3. QVAR [Concomitant]
  4. ARIXTRA [Concomitant]
  5. POTASSIUM CHLORIDE [Concomitant]
  6. LISINOPRIL [Concomitant]
  7. AMPYRA [Suspect]
     Indication: MULTIPLE SCLEROSIS
     Dosage: 10 MG, Q 12 HRS, ORAL
     Route: 048
     Dates: start: 20100901, end: 20101101
  8. LEVOTHROID [Concomitant]
  9. BACLOFEN [Concomitant]
  10. OMEPRAZOLE [Concomitant]

REACTIONS (13)
  - BLOOD POTASSIUM INCREASED [None]
  - PRODUCTIVE COUGH [None]
  - BLOOD URINE [None]
  - DYSURIA [None]
  - ASTHENIA [None]
  - GENERAL PHYSICAL HEALTH DETERIORATION [None]
  - HYPOTENSION [None]
  - ABDOMINAL PAIN [None]
  - DIVERTICULITIS [None]
  - WHITE BLOOD CELLS URINE POSITIVE [None]
  - SEPSIS [None]
  - RENAL FAILURE ACUTE [None]
  - ACTIVITIES OF DAILY LIVING IMPAIRED [None]
